FAERS Safety Report 4819348-1 (Version None)
Quarter: 2005Q4

REPORT INFORMATION
  Report Type: 
  Country: None (occurrence: None)
  Receive Date: 20051031
  Receipt Date: 20050811
  Transmission Date: 20060501
  Serious: No
  Sender: FDA-Public Use
  Company Number: 2005PV001021

PATIENT
  Age: 50 Year
  Sex: Female
  Weight: 70.7611 kg

DRUGS (8)
  1. SYMLIN [Suspect]
     Indication: DIABETES MELLITUS INSULIN-DEPENDENT
     Dosage: 150 MCG; TID; SC
     Route: 058
     Dates: start: 20050809
  2. LANTUS [Concomitant]
  3. TENORMIN [Concomitant]
  4. LOTREL [Concomitant]
  5. LEVOTHYROXINE SODIUM [Concomitant]
  6. MINITRAN [Concomitant]
  7. ASPIRIN [Concomitant]
  8. HUMULIN 70/30 [Concomitant]

REACTIONS (3)
  - MEDICATION ERROR [None]
  - NAUSEA [None]
  - PRESCRIBED OVERDOSE [None]
